FAERS Safety Report 12654231 (Version 1)
Quarter: 2016Q3

REPORT INFORMATION
  Report Type: Spontaneous
  Country: US (occurrence: None)
  Receive Date: 20160815
  Receipt Date: 20160815
  Transmission Date: 20161109
  Serious: No
  Sender: FDA-Public Use
  Company Number: None

PATIENT
  Age: 9 Year
  Sex: Female
  Weight: 31.75 kg

DRUGS (15)
  1. LAMICTAL [Concomitant]
     Active Substance: LAMOTRIGINE
  2. SIMVASTATIN. [Concomitant]
     Active Substance: SIMVASTATIN
  3. QUDEXY XR [Concomitant]
     Active Substance: TOPIRAMATE
  4. PREVACID [Concomitant]
     Active Substance: LANSOPRAZOLE
  5. SINGULAIR [Concomitant]
     Active Substance: MONTELUKAST SODIUM
  6. VIMPAT [Concomitant]
     Active Substance: LACOSAMIDE
  7. LEXAPRO [Concomitant]
     Active Substance: ESCITALOPRAM OXALATE
  8. RISPERIDONE. [Suspect]
     Active Substance: RISPERIDONE
  9. ALBUTEROL INHALATION SOLUTION [Concomitant]
     Active Substance: ALBUTEROL
  10. RITALIN [Concomitant]
     Active Substance: METHYLPHENIDATE HYDROCHLORIDE
  11. DIFLUCAN [Concomitant]
     Active Substance: FLUCONAZOLE
  12. SYMBICORT [Concomitant]
     Active Substance: BUDESONIDE\FORMOTEROL FUMARATE DIHYDRATE
  13. PROAIR HFA [Concomitant]
     Active Substance: ALBUTEROL SULFATE
  14. CLONIDINE. [Concomitant]
     Active Substance: CLONIDINE
  15. CLARITIN [Concomitant]
     Active Substance: LORATADINE

REACTIONS (11)
  - Product name confusion [None]
  - Incorrect product storage [None]
  - Aphasia [None]
  - Dyspnoea [None]
  - Wrong drug administered [None]
  - Activities of daily living impaired [None]
  - Vomiting [None]
  - Dysstasia [None]
  - Feeling abnormal [None]
  - Drug dispensing error [None]
  - Dizziness [None]

NARRATIVE: CASE EVENT DATE: 20160706
